FAERS Safety Report 8484868-8 (Version None)
Quarter: 2012Q3

REPORT INFORMATION
  Report Type: 
  Country: None (occurrence: None)
  Receive Date: 20120703
  Receipt Date: 20120622
  Transmission Date: 20120928
  Serious: Yes (Hospitalization)
  Sender: FDA-Public Use
  Company Number: US-ELI_LILLY_AND_COMPANY-US201012006546

PATIENT
  Sex: Female

DRUGS (30)
  1. FORTEO [Suspect]
     Dosage: 20 UG, QD
  2. FORTEO [Suspect]
     Dosage: 20 UG, QD
  3. FORTEO [Suspect]
     Dosage: 20 UG, QD
  4. FORTEO [Suspect]
     Dosage: 20 UG, QD
     Route: 065
  5. FORTEO [Suspect]
     Dosage: 20 UG, QD
     Route: 065
  6. SINGULAIR [Concomitant]
     Dosage: 10 MG, QD
  7. VITAMIN E [Concomitant]
     Dosage: UNK, QD
  8. DILTIAZEM HCL [Concomitant]
     Dosage: 240 MG, UNKNOWN
  9. POTASSIUM CHLORIDE [Concomitant]
     Indication: PRODUCT USED FOR UNKNOWN INDICATION
     Dosage: UNK, QD
  10. FORTEO [Suspect]
     Dosage: 20 UG, QD
  11. REQUIP [Concomitant]
     Indication: RESTLESS LEGS SYNDROME
     Dosage: UNK, EACH EVENING
  12. FORTEO [Suspect]
     Dosage: 20 UG, QD
  13. FORTEO [Suspect]
     Dosage: 20 UG, QD
  14. PENTASA [Concomitant]
     Dosage: 500 MG, EVERY 6 HRS
  15. PRAVASTATIN [Concomitant]
  16. CALCIUM 600 PLUS VITAMIN D [Concomitant]
     Dosage: 2 DF, QD
  17. MULTI-VITAMIN [Concomitant]
     Dosage: UNK, QD
  18. ONDANSETRON HCL [Concomitant]
     Indication: NAUSEA
     Dosage: 4 MG, PRN
  19. ADVAIR DISKUS 100/50 [Concomitant]
     Indication: PRODUCT USED FOR UNKNOWN INDICATION
  20. FORTEO [Suspect]
     Indication: OSTEOPOROSIS
     Dosage: 20 UG, QD
  21. PROVENTIL                          /00139502/ [Concomitant]
     Indication: PRODUCT USED FOR UNKNOWN INDICATION
  22. FORTEO [Suspect]
     Dosage: 20 UG, QD
     Route: 065
  23. LISINOPRIL AND HYDROCHLOROTHIAZIDE [Concomitant]
     Dosage: 1 DF, QD
  24. OXYBUTYNIN CHLORIDE [Concomitant]
     Indication: BLADDER DISORDER
     Dosage: 5 MG, TID
  25. VITAMIN D [Concomitant]
     Dosage: UNK, BID
  26. FORTEO [Suspect]
     Dosage: 20 UG, QD
  27. ASPIRIN [Concomitant]
     Indication: PAIN
     Dosage: UNK, PRN
  28. TRAMADOL HCL [Concomitant]
     Indication: PAIN
     Dosage: 50 MG, PRN
  29. ASCORBIC ACID [Concomitant]
  30. MELATONIN [Concomitant]

REACTIONS (36)
  - HIATUS HERNIA [None]
  - BALANCE DISORDER [None]
  - DYSPHAGIA [None]
  - FEELING ABNORMAL [None]
  - FATIGUE [None]
  - DIZZINESS [None]
  - POLLAKIURIA [None]
  - EATING DISORDER [None]
  - FALL [None]
  - WHEEZING [None]
  - HERNIA [None]
  - GAIT DISTURBANCE [None]
  - MUSCLE SPASMS [None]
  - URINARY INCONTINENCE [None]
  - POST PROCEDURAL OEDEMA [None]
  - COLONIC OBSTRUCTION [None]
  - RETCHING [None]
  - CONSTIPATION [None]
  - INGUINAL HERNIA [None]
  - BLOOD PRESSURE FLUCTUATION [None]
  - CONTUSION [None]
  - GENERAL PHYSICAL HEALTH DETERIORATION [None]
  - VOMITING [None]
  - MICTURITION URGENCY [None]
  - ASTHMA [None]
  - POST PROCEDURAL COMPLICATION [None]
  - INGUINAL HERNIA REPAIR [None]
  - ABDOMINAL PAIN UPPER [None]
  - SLEEP DISORDER DUE TO A GENERAL MEDICAL CONDITION [None]
  - LUNG DISORDER [None]
  - PNEUMONIA [None]
  - URINARY TRACT OBSTRUCTION [None]
  - BRONCHITIS [None]
  - MUSCULOSKELETAL STIFFNESS [None]
  - MALAISE [None]
  - DIZZINESS POSTURAL [None]
